FAERS Safety Report 6206055-6 (Version None)
Quarter: 2009Q2

REPORT INFORMATION
  Report Type: 
  Country: None (occurrence: None)
  Receive Date: 20090526
  Receipt Date: 20090512
  Transmission Date: 20091009
  Serious: Yes (Other)
  Sender: FDA-Public Use
  Company Number: 235375K09USA

PATIENT
  Age: 49 Year
  Sex: Female
  Weight: 47 kg

DRUGS (3)
  1. REBIF [Suspect]
     Indication: MULTIPLE SCLEROSIS
     Dosage: 44 MCG, 3 IN 1 WEEKS, SUBCUTANEOUS
     Route: 058
     Dates: start: 20080925, end: 20090511
  2. STEROIDS (CORTICOSTEROIDS) [Concomitant]
  3. MULTI-VITAMINS [Concomitant]

REACTIONS (9)
  - ASTHENIA [None]
  - BONE PAIN [None]
  - COELIAC DISEASE [None]
  - GAIT DISTURBANCE [None]
  - GASTRIC ULCER [None]
  - HEPATIC NEOPLASM [None]
  - HIATUS HERNIA [None]
  - MULTIPLE SCLEROSIS RELAPSE [None]
  - WEIGHT DECREASED [None]
